FAERS Safety Report 6659755-8 (Version None)
Quarter: 2010Q1

REPORT INFORMATION
  Report Type: 
  Country: None (occurrence: None)
  Receive Date: 20100330
  Receipt Date: 20100323
  Transmission Date: 20100710
  Serious: Yes (Hospitalization, Other)
  Sender: FDA-Public Use
  Company Number: US-MERCK-0705USA02500

PATIENT
  Age: 70 Year
  Sex: Female
  Weight: 63 kg

DRUGS (4)
  1. FOSAMAX [Suspect]
     Indication: OSTEOPOROSIS
     Route: 048
     Dates: start: 20050206, end: 20060505
  2. PROVERA [Concomitant]
     Indication: MENOPAUSAL SYMPTOMS
     Route: 065
     Dates: start: 19850101, end: 20050101
  3. OGEN [Concomitant]
     Route: 065
     Dates: start: 19850101, end: 20050101
  4. [THERAPY UNSPECIFIED] [Concomitant]
     Indication: BLOOD CHOLESTEROL INCREASED
     Route: 065
     Dates: start: 19840101

REACTIONS (33)
  - ABDOMINAL DISTENSION [None]
  - ADVERSE DRUG REACTION [None]
  - ANAEMIA [None]
  - BACK PAIN [None]
  - BREAST PAIN [None]
  - BRONCHITIS [None]
  - CAFFEINE CONSUMPTION [None]
  - CONFUSIONAL STATE [None]
  - CONSTIPATION [None]
  - DENTAL CARIES [None]
  - DIARRHOEA [None]
  - DIVERTICULITIS [None]
  - DIVERTICULUM [None]
  - FATIGUE [None]
  - FIBROCYSTIC BREAST DISEASE [None]
  - FUNGAL INFECTION [None]
  - GALLBLADDER DISORDER [None]
  - HYPERTENSION [None]
  - IMMUNE SYSTEM DISORDER [None]
  - MIDDLE INSOMNIA [None]
  - NECK PAIN [None]
  - NIGHT SWEATS [None]
  - ORAL INFECTION [None]
  - ORAL TORUS [None]
  - OSTEONECROSIS [None]
  - PANCREATITIS [None]
  - PERIODONTITIS [None]
  - RASH PRURITIC [None]
  - RENAL FAILURE CHRONIC [None]
  - RHEUMATOID ARTHRITIS [None]
  - TOOTH ABSCESS [None]
  - TOOTH FRACTURE [None]
  - WEIGHT INCREASED [None]
